FAERS Safety Report 25967386 (Version 2)
Quarter: 2025Q4

REPORT INFORMATION
  Report Type: Spontaneous
  Country: US (occurrence: US)
  Receive Date: 20251028
  Receipt Date: 20251230
  Transmission Date: 20260119
  Serious: No
  Sender: TRAVERE THERAPEUTICS
  Company Number: US-TRAVERE-2025TVT01937

PATIENT
  Age: 82 Year
  Sex: Female

DRUGS (1)
  1. FILSPARI [Suspect]
     Active Substance: SPARSENTAN
     Indication: IgA nephropathy
     Route: 048
     Dates: start: 20250806

REACTIONS (7)
  - Hyperglycaemia [Unknown]
  - Hypotension [Unknown]
  - Dizziness postural [Unknown]
  - Headache [Unknown]
  - Back pain [Unknown]
  - Abdominal pain [Unknown]
  - Breast swelling [Unknown]

NARRATIVE: CASE EVENT DATE: 20250930
